FAERS Safety Report 17620972 (Version 1)
Quarter: 2020Q2

REPORT INFORMATION
  Report Type: Spontaneous
  Country: GB (occurrence: GB)
  Receive Date: 20200403
  Receipt Date: 20200403
  Transmission Date: 20200713
  Serious: Yes (Disabling)
  Sender: FDA-Public Use
  Company Number: GB-PFIZER INC-2020135268

PATIENT
  Age: 40 Year
  Sex: Male

DRUGS (1)
  1. VARENICLINE TARTRATE [Suspect]
     Active Substance: VARENICLINE TARTRATE
     Indication: SMOKING CESSATION THERAPY
     Dosage: 1 MG, UNK
     Route: 048

REACTIONS (5)
  - Agitation [Unknown]
  - Anxiety [Unknown]
  - Decreased appetite [Unknown]
  - Agitated depression [Unknown]
  - Insomnia [Unknown]

NARRATIVE: CASE EVENT DATE: 20200220
